FAERS Safety Report 9199976 (Version 2)
Quarter: 2013Q2

REPORT INFORMATION
  Report Type: Report from Study
  Country: CA (occurrence: CA)
  Receive Date: 20130329
  Receipt Date: 20130523
  Transmission Date: 20140414
  Serious: Yes (Death, Hospitalization)
  Sender: FDA-Public Use
  Company Number: CA-ROCHE-1198441

PATIENT
  Sex: Male
  Weight: 93 kg

DRUGS (9)
  1. AVASTIN [Suspect]
     Indication: GLIOBLASTOMA
     Route: 042
     Dates: start: 20130215, end: 20130215
  2. DEXAMETHASONE [Concomitant]
  3. MIRTAZAPINE [Concomitant]
  4. CLONAZEPAM [Concomitant]
  5. ZOPICLONE [Concomitant]
  6. SYMBICORT [Concomitant]
  7. STATEX (CANADA) [Concomitant]
  8. BENADRYL [Concomitant]
     Route: 048
     Dates: start: 20130215, end: 20130215
  9. SOLU-MEDROL [Concomitant]
     Route: 042
     Dates: start: 20130215, end: 20130215

REACTIONS (2)
  - Death [Fatal]
  - Pneumonia [Unknown]
